FAERS Safety Report 19484885 (Version 5)
Quarter: 2021Q3

REPORT INFORMATION
  Report Type: Spontaneous
  Country: US (occurrence: US)
  Receive Date: 20210701
  Receipt Date: 20210920
  Transmission Date: 20211014
  Serious: Yes (Hospitalization, Other)
  Sender: FDA-Public Use
  Company Number: US-BEH-2021133460

PATIENT
  Age: 67 Year
  Sex: Female
  Weight: 49.89 kg

DRUGS (3)
  1. HAEGARDA [Suspect]
     Active Substance: HUMAN C1-ESTERASE INHIBITOR
     Indication: PROPHYLAXIS
     Dosage: 6000 INTERNATIONAL UNIT, BIW
     Route: 058
     Dates: start: 20210602
  2. HAEGARDA [Suspect]
     Active Substance: HUMAN C1-ESTERASE INHIBITOR
     Indication: HEREDITARY ANGIOEDEMA
     Dosage: 6000 INTERNATIONAL UNIT
     Route: 058
     Dates: start: 202104
  3. HAEGARDA [Suspect]
     Active Substance: HUMAN C1-ESTERASE INHIBITOR
     Indication: HEREDITARY ANGIOEDEMA
     Dosage: 6000 INTERNATIONAL UNIT, BIW
     Route: 058
     Dates: start: 202105

REACTIONS (15)
  - Fatigue [Unknown]
  - Hereditary angioedema [Recovered/Resolved]
  - Pulmonary congestion [Unknown]
  - Asthenia [Unknown]
  - Suicidal ideation [Unknown]
  - Emotional disorder [Recovered/Resolved]
  - Hereditary angioedema [Recovered/Resolved]
  - Constipation [Recovered/Resolved]
  - Feeling abnormal [Unknown]
  - Frustration tolerance decreased [Unknown]
  - Headache [Not Recovered/Not Resolved]
  - Rhinorrhoea [Unknown]
  - Dysuria [Recovered/Resolved]
  - Cough [Unknown]
  - Depression [Unknown]

NARRATIVE: CASE EVENT DATE: 2021
